FAERS Safety Report 7609321-2 (Version None)
Quarter: 2011Q3

REPORT INFORMATION
  Report Type: 
  Country: None (occurrence: None)
  Receive Date: 20110713
  Receipt Date: 20110713
  Transmission Date: 20111222
  Serious: Yes (Other)
  Sender: FDA-Public Use
  Company Number: None

PATIENT
  Age: 23 Year
  Sex: Female
  Weight: 54.4316 kg

DRUGS (1)
  1. GIANVI 3 MG/0.02 MG TEVA [Suspect]
     Indication: DYSMENORRHOEA
     Dosage: 3 MG/0.02 MG 1X/DAY
     Dates: start: 20100314, end: 20110103

REACTIONS (5)
  - DEPRESSION [None]
  - DEPRESSED MOOD [None]
  - ANGER [None]
  - MOOD ALTERED [None]
  - PRODUCT SUBSTITUTION ISSUE [None]
